FAERS Safety Report 12443010 (Version 4)
Quarter: 2016Q3

REPORT INFORMATION
  Report Type: Spontaneous
  Country: BR (occurrence: BR)
  Receive Date: 20160607
  Receipt Date: 20160707
  Transmission Date: 20161109
  Serious: Yes (Other)
  Sender: FDA-Public Use
  Company Number: BR-SA-2016SA105782

PATIENT
  Sex: Female
  Weight: 52 kg

DRUGS (8)
  1. LANTUS SOLOSTAR [Suspect]
     Active Substance: INSULIN GLARGINE
     Indication: DIABETES MELLITUS MANAGEMENT
     Route: 065
     Dates: start: 2002
  2. LANSOPRAZOLE. [Concomitant]
     Active Substance: LANSOPRAZOLE
     Indication: GASTRITIS
     Dosage: 1 TAB FASTING
     Route: 048
     Dates: start: 201602
  3. ASPIRIN. [Concomitant]
     Active Substance: ASPIRIN
     Indication: THROMBOSIS PROPHYLAXIS
     Dosage: 1 TAB DAILY AFTER LUNCH DAILY
     Route: 048
     Dates: start: 2002
  4. LANTUS [Suspect]
     Active Substance: INSULIN GLARGINE
     Indication: DIABETES MELLITUS MANAGEMENT
     Route: 065
     Dates: start: 2002
  5. SOLOSTAR [Concomitant]
     Active Substance: DEVICE
     Dates: start: 2002
  6. COMBIGAN [Concomitant]
     Active Substance: BRIMONIDINE TARTRATE\TIMOLOL MALEATE
     Indication: GLAUCOMA
     Dosage: 1 DROP Q12H
     Route: 047
     Dates: start: 201601
  7. SINTOCALMY [Concomitant]
     Indication: STRESS
     Route: 048
     Dates: start: 2010
  8. ARTRODAR [Concomitant]
     Active Substance: DIACEREIN
     Indication: OSTEOARTHRITIS
     Route: 048
     Dates: start: 2012

REACTIONS (4)
  - Drug ineffective [Unknown]
  - Depressed level of consciousness [Recovered/Resolved]
  - Hyperglycaemia [Recovered/Resolved]
  - Nervousness [Recovered/Resolved]
